FAERS Safety Report 17049230 (Version 1)
Quarter: 2019Q4

REPORT INFORMATION
  Report Type: Spontaneous
  Country: US (occurrence: US)
  Receive Date: 20191021
  Receipt Date: 20191021
  Transmission Date: 20200122
  Serious: Yes (Hospitalization)
  Sender: FDA-Public Use
  Company Number: None

PATIENT
  Age: 62 Year
  Sex: Male

DRUGS (1)
  1. IMATINIB TAB (X30) 400MG [Suspect]
     Active Substance: IMATINIB
     Indication: CHRONIC MYELOID LEUKAEMIA
     Route: 048
     Dates: start: 201810

REACTIONS (4)
  - Full blood count decreased [None]
  - Hypophagia [None]
  - Feeling abnormal [None]
  - Therapy cessation [None]

NARRATIVE: CASE EVENT DATE: 20191014
